FAERS Safety Report 9087544 (Version 1)
Quarter: 2013Q1

REPORT INFORMATION
  Report Type: Spontaneous
  Country: DE (occurrence: DE)
  Receive Date: 20130201
  Receipt Date: 20130201
  Transmission Date: 20140127
  Serious: Yes (Other)
  Sender: FDA-Public Use
  Company Number: GXKR2013DE000724

PATIENT
  Age: 52 Year
  Sex: Male

DRUGS (1)
  1. SIMVASTATIN SANDOZ [Suspect]
     Indication: HYPERCHOLESTEROLAEMIA
     Dosage: 30 MG, QHS
     Route: 048
     Dates: start: 200602

REACTIONS (4)
  - Emphysema [Unknown]
  - Dyspnoea [Unknown]
  - Hepatitis [Unknown]
  - Pruritus generalised [Recovering/Resolving]
